FAERS Safety Report 9498870 (Version 1)
Quarter: 2013Q3

REPORT INFORMATION
  Report Type: Spontaneous
  Country: US (occurrence: US)
  Receive Date: 20130904
  Receipt Date: 20130904
  Transmission Date: 20140515
  Serious: Yes (Hospitalization, Other)
  Sender: FDA-Public Use
  Company Number: US-UCBSA-096323

PATIENT
  Sex: Male

DRUGS (4)
  1. VIMPAT [Suspect]
     Indication: CONVULSION
     Dosage: .5 ML FOR 4 WEEKS
     Dates: start: 20130426, end: 2013
  2. KEPPRA [Suspect]
     Indication: CONVULSION
  3. DIASTAT [Concomitant]
     Indication: CONVULSION
  4. CLONAZEPAM [Concomitant]
     Indication: CONVULSION

REACTIONS (2)
  - Convulsion [Unknown]
  - Microcephaly [Unknown]
